FAERS Safety Report 10249929 (Version 1)
Quarter: 2014Q2

REPORT INFORMATION
  Report Type: Spontaneous
  Country: US (occurrence: US)
  Receive Date: 20140620
  Receipt Date: 20140620
  Transmission Date: 20141212
  Serious: Yes (Hospitalization, Other)
  Sender: FDA-Public Use
  Company Number: US-MYLANLABS-2014S1014210

PATIENT
  Age: 3 Year
  Sex: Female

DRUGS (3)
  1. CLONAZEPAM [Suspect]
  2. SABRIL [Suspect]
  3. OXYGEN [Concomitant]

REACTIONS (6)
  - Pneumothorax [Not Recovered/Not Resolved]
  - Pneumonia [Not Recovered/Not Resolved]
  - Respiratory distress [Not Recovered/Not Resolved]
  - Increased bronchial secretion [Not Recovered/Not Resolved]
  - Asthma [Not Recovered/Not Resolved]
  - Multiple allergies [Not Recovered/Not Resolved]
